FAERS Safety Report 20933599 (Version 4)
Quarter: 2022Q3

REPORT INFORMATION
  Report Type: Report from Study
  Country: US (occurrence: US)
  Receive Date: 20220608
  Receipt Date: 20220915
  Transmission Date: 20221027
  Serious: Yes (Other)
  Sender: FDA-Public Use
  Company Number: US-TAKEDA-2022TUS029843

PATIENT
  Age: 42 Year
  Sex: Male

DRUGS (1)
  1. VEDOLIZUMAB [Suspect]
     Active Substance: VEDOLIZUMAB
     Indication: Crohn^s disease
     Dosage: 300 MILLIGRAM
     Route: 042
     Dates: start: 20220426

REACTIONS (10)
  - Haematochezia [Recovering/Resolving]
  - Somnolence [Recovered/Resolved]
  - Gastrointestinal sounds abnormal [Recovering/Resolving]
  - Defaecation urgency [Recovering/Resolving]
  - Diarrhoea [Recovering/Resolving]
  - Bowel movement irregularity [Recovering/Resolving]
  - Liver function test increased [Unknown]
  - Rectal discharge [Recovering/Resolving]
  - Fatigue [Recovered/Resolved]
  - Therapeutic reaction time decreased [Recovering/Resolving]

NARRATIVE: CASE EVENT DATE: 20220426
